FAERS Safety Report 23402209 (Version 2)
Quarter: 2024Q4

REPORT INFORMATION
  Report Type: Spontaneous
  Country: US (occurrence: US)
  Receive Date: 20240115
  Receipt Date: 20241114
  Transmission Date: 20250114
  Serious: No
  Sender: PFIZER
  Company Number: US-PFIZER INC-PV202400005602

PATIENT
  Age: 65 Year
  Sex: Female

DRUGS (1)
  1. XELJANZ XR [Suspect]
     Active Substance: TOFACITINIB CITRATE
     Dosage: EVERY 3 DAYS A WEEK

REACTIONS (4)
  - COVID-19 [Unknown]
  - Intentional product misuse [Unknown]
  - Drug ineffective [Unknown]
  - Arthralgia [Unknown]
